FAERS Safety Report 18961031 (Version 1)
Quarter: 2021Q1

REPORT INFORMATION
  Report Type: Spontaneous
  Country: US (occurrence: US)
  Receive Date: 20210302
  Receipt Date: 20210302
  Transmission Date: 20210420
  Serious: No
  Sender: FDA-Public Use
  Company Number: US-NOVOPROD-774847

PATIENT

DRUGS (4)
  1. SAXENDA [Suspect]
     Active Substance: LIRAGLUTIDE
     Dosage: 1.2 MG
     Route: 058
  2. SAXENDA [Suspect]
     Active Substance: LIRAGLUTIDE
     Dosage: 1.2 MG
     Route: 058
  3. SAXENDA [Suspect]
     Active Substance: LIRAGLUTIDE
     Dosage: 1.8 MG
     Route: 058
  4. SAXENDA [Suspect]
     Active Substance: LIRAGLUTIDE
     Indication: PRODUCT USED FOR UNKNOWN INDICATION
     Dosage: 0.6 MG
     Route: 058

REACTIONS (6)
  - Injection site erythema [Unknown]
  - Injection site pruritus [Unknown]
  - Injection site pain [Unknown]
  - Seasonal allergy [Unknown]
  - Injection site mass [Unknown]
  - Injection site discolouration [Unknown]
